FAERS Safety Report 11328943 (Version 1)
Quarter: 2015Q3

REPORT INFORMATION
  Report Type: Spontaneous
  Country: GB (occurrence: GB)
  Receive Date: 20150802
  Receipt Date: 20150802
  Transmission Date: 20151125
  Serious: Yes (Hospitalization)
  Sender: FDA-Public Use
  Company Number: GB-DEXPHARM-20150782

PATIENT
  Age: 66 Year

DRUGS (7)
  1. OMEPRAZOLE. [Suspect]
     Active Substance: OMEPRAZOLE
  2. ADCAL-D3 [Concomitant]
     Active Substance: CALCIUM CARBONATE\CHOLECALCIFEROL
  3. PREDNISOLONE. [Concomitant]
     Active Substance: PREDNISOLONE
  4. LOPERAMIDE [Concomitant]
     Active Substance: LOPERAMIDE
     Dosage: 3  TIMES A DAY
     Dates: start: 20150706
  5. ALENDRONIC ACID [Concomitant]
     Active Substance: ALENDRONIC ACID
     Dosage: EVERY SUNDAY
  6. CO-AMOXICLAV [Suspect]
     Active Substance: AMOXICILLIN\CLAVULANIC ACID
     Dosage: COMPLETED
     Dates: start: 20150623
  7. TAMSULOSIN [Concomitant]
     Active Substance: TAMSULOSIN
     Dosage: 400 MICROGRAM

REACTIONS (1)
  - Hyponatraemia [Unknown]
